FAERS Safety Report 5212098-1 (Version None)
Quarter: 2007Q1

REPORT INFORMATION
  Report Type: 
  Country: None (occurrence: None)
  Receive Date: 20070118
  Receipt Date: 20070108
  Transmission Date: 20070707
  Serious: Yes (Hospitalization)
  Sender: FDA-Public Use
  Company Number: US-ROCHE-469683

PATIENT
  Age: 64 Year
  Sex: Female

DRUGS (2)
  1. CELLCEPT [Suspect]
     Indication: MYASTHENIA GRAVIS
     Dosage: EVERY DAY
     Route: 048
     Dates: start: 20060315, end: 20060315
  2. CELLCEPT [Suspect]
     Route: 048

REACTIONS (2)
  - DEPRESSION [None]
  - SUICIDAL IDEATION [None]
